FAERS Safety Report 5155142-2 (Version None)
Quarter: 2006Q4

REPORT INFORMATION
  Report Type: 
  Country: None (occurrence: None)
  Receive Date: 20061121
  Receipt Date: 20061107
  Transmission Date: 20070319
  Serious: Yes (Death, Hospitalization)
  Sender: FDA-Public Use
  Company Number: DE-ELI_LILLY_AND_COMPANY-DE200611001460

PATIENT
  Age: 86 Year
  Sex: Female

DRUGS (1)
  1. FORTEO [Suspect]
     Indication: OSTEOPOROSIS
     Dosage: 20 UG, UNK
     Route: 058
     Dates: start: 20060701, end: 20060901

REACTIONS (5)
  - ABDOMINAL PAIN [None]
  - CONSTIPATION [None]
  - DEATH [None]
  - DYSPNOEA [None]
  - GASTROINTESTINAL CARCINOMA [None]
